FAERS Safety Report 24214888 (Version 2)
Quarter: 2024Q4

REPORT INFORMATION
  Report Type: Spontaneous
  Country: US (occurrence: US)
  Receive Date: 20240815
  Receipt Date: 20241112
  Transmission Date: 20250115
  Serious: Yes (Death, Other)
  Sender: GILEAD
  Company Number: US-GILEAD-2024-0684236

PATIENT
  Age: 64 Year
  Sex: Female

DRUGS (1)
  1. YESCARTA [Suspect]
     Active Substance: AXICABTAGENE CILOLEUCEL
     Indication: Diffuse large B-cell lymphoma
     Dosage: UNK
     Route: 042
     Dates: start: 20221011, end: 20221011

REACTIONS (2)
  - Acute myeloid leukaemia [Fatal]
  - High grade B-cell lymphoma recurrent [Fatal]

NARRATIVE: CASE EVENT DATE: 20240731
